FAERS Safety Report 7269321-1 (Version None)
Quarter: 2011Q1

REPORT INFORMATION
  Report Type: 
  Country: None (occurrence: None)
  Receive Date: 20110125
  Receipt Date: 20110117
  Transmission Date: 20110831
  Serious: Yes (Other)
  Sender: FDA-Public Use
  Company Number: 2010SP007657

PATIENT
  Age: 36 Year
  Sex: Female

DRUGS (7)
  1. ZITHROMAX [Suspect]
     Indication: RESPIRATORY TRACT INFECTION
     Dates: start: 20100115, end: 20100117
  2. SERETAIDE [Concomitant]
  3. NUVARING [Suspect]
     Indication: CONTRACEPTION
     Dates: start: 20050901, end: 20100124
  4. SALOFALK /00747601/ [Concomitant]
  5. CORTICOSTEROIDS [Concomitant]
  6. SINGULAIR [Concomitant]
  7. XENICAL [Concomitant]

REACTIONS (6)
  - CAESAREAN SECTION [None]
  - PREMATURE SEPARATION OF PLACENTA [None]
  - PREGNANCY WITH CONTRACEPTIVE DEVICE [None]
  - ANTEPARTUM HAEMORRHAGE [None]
  - RESPIRATORY TRACT INFECTION [None]
  - DRUG EXPOSURE DURING PREGNANCY [None]
